FAERS Safety Report 8824854 (Version 2)
Quarter: 2012Q4

REPORT INFORMATION
  Report Type: Report from Study
  Country: GB (occurrence: GB)
  Receive Date: 20121004
  Receipt Date: 20121019
  Transmission Date: 20130627
  Serious: Yes (Death, Other)
  Sender: FDA-Public Use
  Company Number: GB-ASTELLAS-2012EU007048

PATIENT
  Age: 69 Year
  Sex: Male

DRUGS (11)
  1. ENZALUTAMIDE [Suspect]
     Indication: PROSTATE CANCER
     Dosage: 160 mg, UID/QD
     Route: 048
     Dates: start: 20120822
  2. PROSTAP [Concomitant]
     Dosage: 11.25 mg, Cyclic
     Route: 065
  3. ALLOPURINOL [Concomitant]
     Dosage: 100 mg, UID/QD
     Route: 065
  4. DEXAMETHASONE [Concomitant]
     Dosage: 4 mg, Unknown/D
     Route: 065
     Dates: start: 20120820
  5. OMEPRAZOLE [Concomitant]
     Dosage: 40 mg, UID/QD
     Route: 065
  6. IBUPROFEN [Concomitant]
     Dosage: 400 mg, prn
     Route: 065
  7. PARACETAMOL [Concomitant]
     Dosage: 1 g, prn
     Route: 065
  8. METOCLOPRAMIDE [Concomitant]
     Dosage: 10 mg, prn
     Route: 065
  9. OXYNORM [Concomitant]
     Dosage: 5 mg, prn
     Route: 065
  10. FENTANYL [Concomitant]
     Dosage: 25 ug, Other
     Route: 065
  11. DOCUSATE SODIUM [Concomitant]
     Dosage: 100 mg, prn
     Route: 065

REACTIONS (3)
  - Respiratory failure [Fatal]
  - Thrombocytopenia [Fatal]
  - Anaemia [Recovered/Resolved]
